FAERS Safety Report 7426004-2 (Version None)
Quarter: 2011Q2

REPORT INFORMATION
  Report Type: 
  Country: None (occurrence: None)
  Receive Date: 20110420
  Receipt Date: 20101005
  Transmission Date: 20111010
  Serious: Yes (Other)
  Sender: FDA-Public Use
  Company Number: US-BAYER-201028414NA

PATIENT
  Age: 39 Year
  Sex: Female
  Weight: 90.703 kg

DRUGS (10)
  1. YASMIN [Suspect]
     Route: 048
     Dates: start: 20040901, end: 20061115
  2. NEXIUM [Concomitant]
     Indication: GASTROOESOPHAGEAL REFLUX DISEASE
     Route: 048
  3. ACETAMINOPHEN [Concomitant]
  4. POTASSIUM [POTASSIUM] [Concomitant]
     Dosage: UNK
     Dates: start: 20060101, end: 20070101
  5. NEXIUM [Concomitant]
     Indication: DYSPEPSIA
  6. METFORMIN [Concomitant]
     Indication: DIABETES MELLITUS
     Dosage: UNK
     Route: 048
     Dates: start: 20060101
  7. SYNTHROID [Concomitant]
     Indication: BASEDOW'S DISEASE
     Route: 048
  8. TARKA [Concomitant]
     Indication: HYPERTENSION
     Dosage: UNK
     Route: 048
     Dates: start: 19980101
  9. YAZ [Suspect]
     Route: 048
     Dates: start: 20061201, end: 20070815
  10. YASMIN [Suspect]
     Route: 048
     Dates: start: 20070901, end: 20080901

REACTIONS (6)
  - CHOLECYSTITIS CHRONIC [None]
  - ABDOMINAL PAIN UPPER [None]
  - CHOLELITHIASIS [None]
  - GALLBLADDER INJURY [None]
  - GALLBLADDER DISORDER [None]
  - EMOTIONAL DISTRESS [None]
